FAERS Safety Report 12836642 (Version 1)
Quarter: 2016Q4

REPORT INFORMATION
  Report Type: Spontaneous
  Country: US (occurrence: US)
  Receive Date: 20161011
  Receipt Date: 20161011
  Transmission Date: 20170207
  Serious: Yes (Hospitalization)
  Sender: FDA-Public Use
  Company Number: None

PATIENT
  Age: 41 Year
  Sex: Female
  Weight: 86.18 kg

DRUGS (4)
  1. BUPROPION HCL XL GENERIC FOR WELLBUTRIN PAR PHARM [Suspect]
     Active Substance: BUPROPION HYDROCHLORIDE
     Indication: DEPRESSION
     Dosage: BUPROPION HCL XL - 1 PILL IN THE MORNING - ORAL
     Route: 048
     Dates: start: 20160617, end: 20160619
  2. DAILY MULTI VITAMIN [Concomitant]
  3. HYDROMORPHONE [Concomitant]
     Active Substance: HYDROMORPHONE
  4. XANAX [Concomitant]
     Active Substance: ALPRAZOLAM

REACTIONS (5)
  - Amnesia [None]
  - Vomiting [None]
  - Headache [None]
  - Hostility [None]
  - Aggression [None]

NARRATIVE: CASE EVENT DATE: 20160618
